FAERS Safety Report 8958217 (Version 1)
Quarter: 2012Q4

REPORT INFORMATION
  Report Type: 
  Country: ES (occurrence: ES)
  Receive Date: 20121211
  Receipt Date: 20121211
  Transmission Date: 20130627
  Serious: Yes (Other)
  Sender: FDA-Public Use
  Company Number: ES-BAYER-2012-126237

PATIENT
  Age: 81 Year
  Sex: Male

DRUGS (6)
  1. ADIRO 100 [Suspect]
     Indication: PERIPHERAL ISCHAEMIA
     Dosage: 100 mg, QD
     Route: 048
     Dates: start: 20120531
  2. HEPARIN SODIUM [Interacting]
     Indication: PERIPHERAL ISCHAEMIA
     Route: 042
     Dates: start: 20120531, end: 20120607
  3. ENALAPRIL [Concomitant]
     Indication: HYPERTENSION
     Dosage: 20 mg, QD
     Route: 048
     Dates: start: 20120531, end: 20120609
  4. PARACETAMOL [Concomitant]
     Indication: PAIN
     Dosage: 1.33333 g, TID
     Route: 042
     Dates: start: 20120531
  5. TRAMADOL HYDROCHLORIDE [Concomitant]
     Indication: HYPERTENSION
     Dosage: 50 mg, TID
     Route: 042
     Dates: start: 20120531
  6. HYDROCHLOROTHIAZIDE [Concomitant]
     Dosage: 12.5 mg, QD
     Route: 048

REACTIONS (2)
  - Coagulopathy [Recovered/Resolved]
  - Anaemia [Recovered/Resolved]
